FAERS Safety Report 24012608 (Version 2)
Quarter: 2024Q4

REPORT INFORMATION
  Report Type: Spontaneous
  Country: AU (occurrence: AU)
  Receive Date: 20240626
  Receipt Date: 20241120
  Transmission Date: 20250114
  Serious: Yes (Hospitalization)
  Sender: SANDOZ
  Company Number: AU-BRISTOL-MYERS SQUIBB COMPANY2024-020769

PATIENT
  Age: 67 Year
  Sex: Female

DRUGS (33)
  1. BORTEZOMIB [Suspect]
     Active Substance: BORTEZOMIB
     Indication: Plasma cell myeloma
     Dosage: 1.68 MG, QW
     Route: 058
     Dates: start: 20240112, end: 20240112
  2. BORTEZOMIB [Suspect]
     Active Substance: BORTEZOMIB
     Dosage: 3.12 MG, QW
     Route: 058
     Dates: start: 20230223, end: 20230223
  3. DECADRON (DEXAMETHASONE SODIUM PHOSPHATE) [Suspect]
     Active Substance: DEXAMETHASONE SODIUM PHOSPHATE
     Dosage: 20 MG, QD
     Route: 048
     Dates: start: 20230223, end: 20230224
  4. DECADRON (DEXAMETHASONE SODIUM PHOSPHATE) [Suspect]
     Active Substance: DEXAMETHASONE SODIUM PHOSPHATE
     Indication: Plasma cell myeloma
     Dosage: 8 MG
     Route: 048
     Dates: start: 20240105, end: 20240105
  5. DECADRON (DEXAMETHASONE SODIUM PHOSPHATE) [Suspect]
     Active Substance: DEXAMETHASONE SODIUM PHOSPHATE
     Dosage: 8 MG
     Route: 048
     Dates: start: 20231212, end: 20231212
  6. MEZIGDOMIDE [Suspect]
     Active Substance: MEZIGDOMIDE
     Dosage: 0.6 MG
     Route: 048
     Dates: start: 20240105, end: 20240115
  7. MEZIGDOMIDE [Suspect]
     Active Substance: MEZIGDOMIDE
     Dosage: 0.8 MG
     Route: 048
     Dates: start: 20231212, end: 20231225
  8. MEZIGDOMIDE [Suspect]
     Active Substance: MEZIGDOMIDE
     Indication: Plasma cell myeloma
     Dosage: 1 MG, QD
     Route: 048
     Dates: start: 20230223, end: 20230224
  9. ASPIRIN [Concomitant]
     Active Substance: ASPIRIN
     Indication: Prophylaxis
     Dosage: 100 MG, QD
     Route: 048
     Dates: start: 202109
  10. AMOXICILLIN\CLAVULANATE POTASSIUM [Concomitant]
     Active Substance: AMOXICILLIN\CLAVULANATE POTASSIUM
     Indication: Febrile neutropenia
     Dosage: UNK
     Route: 065
     Dates: start: 20240120, end: 20240124
  11. DICLOFENAC [Concomitant]
     Active Substance: DICLOFENAC
     Indication: Prophylaxis
     Dosage: 2 %
     Route: 061
     Dates: start: 20231212
  12. DICLOFENAC [Concomitant]
     Active Substance: DICLOFENAC
     Dosage: 1 %
     Route: 061
     Dates: start: 20231212
  13. OXYCODONE HYDROCHLORIDE [Concomitant]
     Active Substance: OXYCODONE HYDROCHLORIDE
     Indication: Chest pain
     Dosage: 5 MG
     Route: 048
     Dates: start: 20231123, end: 20240214
  14. FILGRASTIM [Concomitant]
     Active Substance: FILGRASTIM
     Indication: Neutropenia
     Dosage: 480 MG
     Route: 058
     Dates: start: 20230803
  15. MORPHINE [Concomitant]
     Active Substance: MORPHINE
     Indication: Musculoskeletal pain
     Dosage: 5 MG
     Route: 048
     Dates: start: 20240210, end: 20240214
  16. NIZATIDINE [Concomitant]
     Active Substance: NIZATIDINE
     Indication: Product used for unknown indication
     Dosage: 300 MG, QD
     Route: 048
     Dates: start: 20230223
  17. OXYCONTIN [Concomitant]
     Active Substance: OXYCODONE HYDROCHLORIDE
     Dosage: 10 MG, QD
     Route: 048
     Dates: start: 20231215
  18. OXYCONTIN [Concomitant]
     Active Substance: OXYCODONE HYDROCHLORIDE
     Dosage: 10 MG, QD
     Route: 048
     Dates: start: 20240104
  19. OXYCONTIN [Concomitant]
     Active Substance: OXYCODONE HYDROCHLORIDE
     Indication: Prophylaxis
     Dosage: 15 MG, QD
     Route: 048
     Dates: start: 20231201
  20. OXYCONTIN [Concomitant]
     Active Substance: OXYCODONE HYDROCHLORIDE
     Indication: Chest pain
     Dosage: UNK
     Route: 048
     Dates: start: 202109
  21. PANADOL [Concomitant]
     Active Substance: ACETAMINOPHEN
     Indication: Prophylaxis
     Dosage: 665 MG
     Route: 048
     Dates: start: 20231212
  22. ACETAMINOPHEN [Concomitant]
     Active Substance: ACETAMINOPHEN
     Indication: Febrile neutropenia
     Dosage: 1 G
     Route: 048
     Dates: start: 20240118, end: 20240122
  23. POTASSIUM CHLORIDE [Concomitant]
     Active Substance: POTASSIUM CHLORIDE
     Dosage: 1200 MG
     Route: 048
     Dates: start: 20230620
  24. POTASSIUM CHLORIDE [Concomitant]
     Active Substance: POTASSIUM CHLORIDE
     Indication: Prophylaxis
     Dosage: UNK, QD
     Route: 048
     Dates: start: 20240120, end: 20240120
  25. POTASSIUM CHLORIDE [Concomitant]
     Active Substance: POTASSIUM CHLORIDE
     Indication: Hypokalaemia
     Dosage: UNK
     Route: 048
     Dates: start: 20240121, end: 20240121
  26. PREGABALIN [Concomitant]
     Active Substance: PREGABALIN
     Indication: Peripheral sensory neuropathy
     Dosage: 150 MG, QD
     Route: 048
     Dates: start: 202202
  27. SULFAMETHOXAZOLE\TRIMETHOPRIM [Concomitant]
     Active Substance: SULFAMETHOXAZOLE\TRIMETHOPRIM
     Indication: Prophylaxis
     Dosage: UNK, QD
     Route: 048
     Dates: start: 202109
  28. SEMAGLUTIDE [Concomitant]
     Active Substance: SEMAGLUTIDE
     Indication: Obesity
     Dosage: 0.25 MG, QW
     Route: 058
     Dates: start: 20230720
  29. SPIRONOLACTONE [Concomitant]
     Active Substance: SPIRONOLACTONE
     Indication: Oedema peripheral
     Dosage: 25 MG
     Route: 048
     Dates: start: 20231212
  30. TAPENTADOL [Concomitant]
     Active Substance: TAPENTADOL
     Indication: Musculoskeletal pain
     Dosage: 50 MG
     Route: 048
     Dates: start: 20240203, end: 20240208
  31. TAPENTADOL [Concomitant]
     Active Substance: TAPENTADOL
     Indication: Prophylaxis
     Dosage: 50 MG
     Route: 048
     Dates: start: 20240121, end: 20240124
  32. VITAMIN D3 [Concomitant]
     Active Substance: CHOLECALCIFEROL
     Indication: Prophylaxis
     Dosage: 25 MG
     Route: 048
     Dates: start: 202111
  33. ZOLEDRONIC ACID [Concomitant]
     Active Substance: ZOLEDRONIC ACID
     Indication: Prophylaxis
     Dosage: 4 MG
     Route: 058
     Dates: start: 202207

REACTIONS (3)
  - Musculoskeletal chest pain [Recovering/Resolving]
  - Infection [Recovered/Resolved]
  - Thrombocytopenia [Not Recovered/Not Resolved]

NARRATIVE: CASE EVENT DATE: 20240201
